FAERS Safety Report 4610393-8 (Version None)
Quarter: 2005Q2

REPORT INFORMATION
  Report Type: 
  Country: None (occurrence: None)
  Receive Date: 20050301
  Receipt Date: 20041209
  Transmission Date: 20051028
  Serious: No
  Sender: FDA-Public Use
  Company Number: WAES 0412USA01203

PATIENT
  Age: 56 Year
  Sex: Female

DRUGS (7)
  1. ZETIA [Suspect]
     Indication: LIPIDS INCREASED
     Dosage: 10 MG/DAILY/PO
     Route: 048
     Dates: start: 20040613, end: 20041115
  2. ALLEGRA [Concomitant]
  3. AMARYL [Concomitant]
  4. MICARDIS HCT [Concomitant]
  5. PREMARIN [Concomitant]
  6. SYNTHROID [Concomitant]
  7. ZOLOFT [Concomitant]

REACTIONS (1)
  - PALPITATIONS [None]
